FAERS Safety Report 8543555-8 (Version None)
Quarter: 2012Q3

REPORT INFORMATION
  Report Type: 
  Country: None (occurrence: None)
  Receive Date: 20120727
  Receipt Date: 20120716
  Transmission Date: 20120928
  Serious: Yes (Hospitalization)
  Sender: FDA-Public Use
  Company Number: US-BAYER-2012-072624

PATIENT
  Age: 33 Year
  Sex: Female
  Weight: 85.7 kg

DRUGS (9)
  1. YAZ [Suspect]
  2. METOPROLOL SUCCINATE [Concomitant]
     Indication: SUPRAVENTRICULAR TACHYCARDIA
     Dosage: 50 MG, DAILY
     Dates: start: 20111204, end: 20120619
  3. LYRICA [Concomitant]
     Dosage: UNK
     Dates: start: 20120524
  4. CITALOPRAM HYDROBROMIDE [Concomitant]
     Indication: ANXIETY
     Dosage: UNK
     Dates: start: 20120524
  5. PROTONIX [Concomitant]
     Indication: GASTROOESOPHAGEAL REFLUX PROPHYLAXIS
  6. LORTAB [Concomitant]
     Indication: MUSCULOSKELETAL CHEST PAIN
  7. LORAZEPAM [Concomitant]
     Dosage: UNK
     Dates: start: 20120522
  8. BEYAZ [Suspect]
  9. METRONIDAZOLE [Concomitant]
     Dosage: 500 MG, TWICE DAILY FOR 7 DAYS
     Dates: start: 20120528

REACTIONS (1)
  - PULMONARY EMBOLISM [None]
